FAERS Safety Report 18981009 (Version 2)
Quarter: 2021Q2

REPORT INFORMATION
  Report Type: Spontaneous
  Country: US (occurrence: US)
  Receive Date: 20210308
  Receipt Date: 20210630
  Transmission Date: 20210717
  Serious: Yes (Hospitalization, Other)
  Sender: FDA-Public Use
  Company Number: US-GILEAD-2021-0519947

PATIENT
  Sex: Female
  Weight: 40.82 kg

DRUGS (82)
  1. PREZISTA [Concomitant]
     Active Substance: DARUNAVIR ETHANOLATE
  2. ABILIFY [Concomitant]
     Active Substance: ARIPIPRAZOLE
  3. CARISOPRODOL. [Concomitant]
     Active Substance: CARISOPRODOL
  4. CEFDINIR. [Concomitant]
     Active Substance: CEFDINIR
  5. DRONABINOL. [Concomitant]
     Active Substance: DRONABINOL
  6. HYDROXYZINE [Concomitant]
     Active Substance: HYDROXYZINE HYDROCHLORIDE
  7. MEGACE [Concomitant]
     Active Substance: MEGESTROL ACETATE
  8. METFORMIN [Concomitant]
     Active Substance: METFORMIN HYDROCHLORIDE
  9. NAPROXEN. [Concomitant]
     Active Substance: NAPROXEN
  10. NEXIUM 1?2?3 [Concomitant]
     Active Substance: AMOXICILLIN\CLARITHROMYCIN\ESOMEPRAZOLE
  11. NORVIR [Concomitant]
     Active Substance: RITONAVIR
  12. OXYCODONE [Concomitant]
     Active Substance: OXYCODONE
  13. PROMETHAZINE [Concomitant]
     Active Substance: PROMETHAZINE HYDROCHLORIDE
  14. MIDAZOLAM. [Concomitant]
     Active Substance: MIDAZOLAM
  15. TRUVADA [Suspect]
     Active Substance: EMTRICITABINE\TENOFOVIR DISOPROXIL FUMARATE
     Indication: HIV INFECTION
     Dosage: UNK
     Route: 048
     Dates: start: 2005
  16. ARIPIPRAZOLE. [Concomitant]
     Active Substance: ARIPIPRAZOLE
  17. BUPROPION. [Concomitant]
     Active Substance: BUPROPION
  18. CIPROFLOXACIN. [Concomitant]
     Active Substance: CIPROFLOXACIN
  19. DOXEPINE [Concomitant]
     Active Substance: DOXEPIN
  20. DOXYCYCLINE. [Concomitant]
     Active Substance: DOXYCYCLINE
  21. URIBEL [Concomitant]
     Active Substance: HYOSCYAMINE SULFATE\METHENAMINE\METHYLENE BLUE\PHENYL SALICYLATE\SODIUM PHOSPHATE, MONOBASIC, MONOHYDRATE
  22. WELLBUTRIN [Concomitant]
     Active Substance: BUPROPION HYDROCHLORIDE
  23. XOPENEX [Concomitant]
     Active Substance: LEVALBUTEROL HYDROCHLORIDE
  24. DESCOVY [Concomitant]
     Active Substance: EMTRICITABINE\TENOFOVIR ALAFENAMIDE FUMARATE
  25. ALORA [PASSIFLORA INCARNATA] [Concomitant]
  26. CITALOPRAM [Concomitant]
     Active Substance: CITALOPRAM HYDROBROMIDE
  27. FLUCONAZOLE. [Concomitant]
     Active Substance: FLUCONAZOLE
  28. IVERMECTIN. [Concomitant]
     Active Substance: IVERMECTIN
  29. JANUMET [Concomitant]
     Active Substance: METFORMIN HYDROCHLORIDE\SITAGLIPTIN PHOSPHATE
  30. LEVEMIR [Concomitant]
     Active Substance: INSULIN DETEMIR
  31. NYSTATIN. [Concomitant]
     Active Substance: NYSTATIN
  32. OFLOXACIN. [Concomitant]
     Active Substance: OFLOXACIN
  33. OMEPRAZOLE. [Concomitant]
     Active Substance: OMEPRAZOLE
  34. POTASSIUM CHLORIDE. [Concomitant]
     Active Substance: POTASSIUM CHLORIDE
  35. ZOLPIDEM [Concomitant]
     Active Substance: ZOLPIDEM TARTRATE
  36. FENTANYL. [Concomitant]
     Active Substance: FENTANYL
  37. ACETAMINOPHEN. [Concomitant]
     Active Substance: ACETAMINOPHEN
  38. AZITHROMYCIN ANHYDROUS. [Concomitant]
     Active Substance: AZITHROMYCIN ANHYDROUS
  39. GABAPENTIN. [Concomitant]
     Active Substance: GABAPENTIN
  40. LYRICA [Concomitant]
     Active Substance: PREGABALIN
  41. NITROFURANTOIN. [Concomitant]
     Active Substance: NITROFURANTOIN
  42. SOFOSBUVIR;VELPATASVIR [Concomitant]
     Active Substance: SOFOSBUVIR\VELPATASVIR
  43. CELEBREX [Concomitant]
     Active Substance: CELECOXIB
  44. ISENTRESS [Concomitant]
     Active Substance: RALTEGRAVIR POTASSIUM
  45. SYMTUZA [Concomitant]
     Active Substance: COBICISTAT\DARUNAVIR\EMTRICITABINE\TENOFOVIR ALAFENAMIDE
  46. TIVICAY [Concomitant]
     Active Substance: DOLUTEGRAVIR SODIUM
  47. CLONAZEPAM. [Concomitant]
     Active Substance: CLONAZEPAM
  48. CYCLOBENZAPRINE. [Concomitant]
     Active Substance: CYCLOBENZAPRINE
  49. LEVALBUTEROL [LEVOSALBUTAMOL HYDROCHLORIDE] [Concomitant]
     Active Substance: LEVALBUTEROL HYDROCHLORIDE
  50. MARINOL [ALLOPURINOL] [Concomitant]
     Active Substance: ALLOPURINOL
  51. METRONIDAZOLE. [Concomitant]
     Active Substance: METRONIDAZOLE
  52. ALENDRONATE [Concomitant]
     Active Substance: ALENDRONATE SODIUM
  53. FUROSEMIDE. [Concomitant]
     Active Substance: FUROSEMIDE
  54. JANUVIA [Concomitant]
     Active Substance: SITAGLIPTIN PHOSPHATE
  55. ONDANSETRON [Concomitant]
     Active Substance: ONDANSETRON
  56. RITONAVIR. [Concomitant]
     Active Substance: RITONAVIR
  57. VALACYCLOVIR HCL [Concomitant]
     Active Substance: VALACYCLOVIR HYDROCHLORIDE
  58. ZOLOFT [Concomitant]
     Active Substance: SERTRALINE HYDROCHLORIDE
  59. PROPARACAINE HCL [Concomitant]
     Active Substance: PROPARACAINE HYDROCHLORIDE
  60. BENZONATATE. [Concomitant]
     Active Substance: BENZONATATE
  61. CHLORZOXAZONE. [Concomitant]
     Active Substance: CHLORZOXAZONE
  62. DICLOFENAC [Concomitant]
     Active Substance: DICLOFENAC
  63. ESOMEPRAZOLE. [Concomitant]
     Active Substance: ESOMEPRAZOLE MAGNESIUM
  64. GOLYTELY [Concomitant]
     Active Substance: POLYETHYLENE GLYCOL 3350\POTASSIUM CHLORIDE\SODIUM BICARBONATE\SODIUM CHLORIDE\SODIUM SULFATE
  65. HYDROCODONE [Concomitant]
     Active Substance: HYDROCODONE
  66. LISINOPRIL. [Concomitant]
     Active Substance: LISINOPRIL
  67. MELOXICAM. [Concomitant]
     Active Substance: MELOXICAM
  68. MUPIROCIN. [Concomitant]
     Active Substance: MUPIROCIN
  69. NARCAN [Concomitant]
     Active Substance: NALOXONE HYDROCHLORIDE
  70. PERMETHRIN. [Concomitant]
     Active Substance: PERMETHRIN
  71. TIZANIDINE. [Concomitant]
     Active Substance: TIZANIDINE
  72. TRUVADA [Suspect]
     Active Substance: EMTRICITABINE\TENOFOVIR DISOPROXIL FUMARATE
     Dosage: UNK
     Route: 048
     Dates: start: 20140128, end: 20170519
  73. BIKTARVY [Concomitant]
     Active Substance: BICTEGRAVIR SODIUM\EMTRICITABINE\TENOFOVIR ALAFENAMIDE FUMARATE
  74. NORVIR [Concomitant]
     Active Substance: RITONAVIR
  75. ESTRADIOL. [Concomitant]
     Active Substance: ESTRADIOL
  76. IBUPROFEN. [Concomitant]
     Active Substance: IBUPROFEN
  77. PREMARIN [Concomitant]
     Active Substance: ESTROGENS, CONJUGATED
  78. SERTRALINE [Concomitant]
     Active Substance: SERTRALINE HYDROCHLORIDE
  79. TAMSULOSIN [Concomitant]
     Active Substance: TAMSULOSIN
  80. TRAMADOL. [Concomitant]
     Active Substance: TRAMADOL
  81. VIVELLE [Concomitant]
     Active Substance: ESTRADIOL
  82. PHENYLEPHRINE [Concomitant]
     Active Substance: PHENYLEPHRINE HYDROCHLORIDE

REACTIONS (7)
  - Pain [Not Recovered/Not Resolved]
  - Renal failure [Recovered/Resolved]
  - Anhedonia [Not Recovered/Not Resolved]
  - Anxiety [Not Recovered/Not Resolved]
  - Emotional distress [Not Recovered/Not Resolved]
  - Osteoporosis [Not Recovered/Not Resolved]
  - Gait disturbance [Unknown]

NARRATIVE: CASE EVENT DATE: 2015
